FAERS Safety Report 9302377 (Version 2)
Quarter: 2013Q3

REPORT INFORMATION
  Report Type: Spontaneous
  Country: US (occurrence: US)
  Receive Date: 20130522
  Receipt Date: 20130821
  Transmission Date: 20140515
  Serious: No
  Sender: FDA-Public Use
  Company Number: US-BIOGENIDEC-2013BI035312

PATIENT
  Sex: Male

DRUGS (1)
  1. AVONEX [Suspect]
     Indication: MULTIPLE SCLEROSIS
     Route: 030
     Dates: start: 20130327

REACTIONS (14)
  - Hypersomnia [Not Recovered/Not Resolved]
  - Bursitis [Recovered/Resolved]
  - Somnolence [Unknown]
  - Weight decreased [Recovered/Resolved]
  - Dehydration [Recovered/Resolved]
  - Hernia [Not Recovered/Not Resolved]
  - Weight increased [Not Recovered/Not Resolved]
  - Muscular weakness [Unknown]
  - Vomiting [Recovered/Resolved]
  - Insomnia [Unknown]
  - Muscle spasms [Not Recovered/Not Resolved]
  - Arthralgia [Recovered/Resolved]
  - Pain [Recovered/Resolved]
  - Fatigue [Not Recovered/Not Resolved]
